FAERS Safety Report 9122715 (Version 1)
Quarter: 2013Q1

REPORT INFORMATION
  Report Type: Spontaneous
  Country: US (occurrence: US)
  Receive Date: 20130115
  Receipt Date: 20130115
  Transmission Date: 20140127
  Serious: Yes (Other)
  Sender: FDA-Public Use
  Company Number: US-009507513-1301USA002659

PATIENT
  Age: 62 Year
  Sex: Male

DRUGS (11)
  1. SINGULAIR [Suspect]
  2. WELLBUTRIN [Suspect]
     Route: 050
  3. NASONEX [Suspect]
  4. ALBUTEROL [Suspect]
  5. PREVACID [Suspect]
  6. MELOXICAM [Suspect]
  7. BENAZEPRIL HYDROCHLORIDE [Suspect]
  8. SPIRIVA [Suspect]
  9. PREDNISONE [Suspect]
  10. CHANTIX [Suspect]
  11. ADVAIR [Suspect]

REACTIONS (3)
  - Tremor [Unknown]
  - Blood pressure increased [Unknown]
  - Aggression [Unknown]
